FAERS Safety Report 8614980-1 (Version None)
Quarter: 2012Q3

REPORT INFORMATION
  Report Type: 
  Country: None (occurrence: None)
  Receive Date: 20120809
  Receipt Date: 20120724
  Transmission Date: 20120928
  Serious: Yes (Other)
  Sender: FDA-Public Use
  Company Number: TPA2011A04994

PATIENT
  Age: 52 Year
  Sex: Male
  Weight: 95.2554 kg

DRUGS (5)
  1. ULORIC [Suspect]
     Indication: GOUT
     Dates: start: 20110801
  2. IRON SUPPLEMENT (IRON) [Concomitant]
  3. ATENOLOL [Concomitant]
  4. GEMFIBROZIL [Concomitant]
  5. SUCRALFATE [Concomitant]

REACTIONS (3)
  - OEDEMA PERIPHERAL [None]
  - GOUT [None]
  - ANAEMIA [None]
